FAERS Safety Report 17000039 (Version 2)
Quarter: 2019Q4

REPORT INFORMATION
  Report Type: Spontaneous
  Country: US (occurrence: US)
  Receive Date: 20191106
  Receipt Date: 20191119
  Transmission Date: 20200122
  Serious: Yes (Other)
  Sender: FDA-Public Use
  Company Number: US-PFIZER INC-2019478100

PATIENT
  Age: 71 Year
  Sex: Female

DRUGS (1)
  1. XELJANZ XR [Suspect]
     Active Substance: TOFACITINIB CITRATE
     Dosage: 11 MG, UNK

REACTIONS (7)
  - Chest pain [Unknown]
  - Cerebrovascular accident [Unknown]
  - Arthritis [Unknown]
  - Hyporeflexia [Unknown]
  - Dyspnoea [Unknown]
  - Cerebral palsy [Unknown]
  - Pain [Unknown]
